FAERS Safety Report 11216838 (Version 1)
Quarter: 2015Q2

REPORT INFORMATION
  Report Type: Spontaneous
  Country: GB (occurrence: GB)
  Receive Date: 20150624
  Receipt Date: 20150624
  Transmission Date: 20150821
  Serious: Yes (Hospitalization)
  Sender: FDA-Public Use
  Company Number: GB-TEVA-571910ACC

PATIENT
  Age: 80 Year
  Sex: Female

DRUGS (8)
  1. LORAZEPAM. [Concomitant]
     Active Substance: LORAZEPAM
     Dosage: 2 MILLIGRAM DAILY;
  2. ATORVASTATIN [Concomitant]
     Active Substance: ATORVASTATIN
     Dosage: 20 MILLIGRAM DAILY; TAKE AT NIGHT.
  3. FUROSEMIDE. [Suspect]
     Active Substance: FUROSEMIDE
     Dosage: 20 MILLIGRAM DAILY; TAKE IN THE MORNING.
  4. ASPIRIN. [Concomitant]
     Active Substance: ASPIRIN
     Dosage: 75 MILLIGRAM DAILY; TAKE IN THE MORNING.
  5. MULTIVITAMIN [Concomitant]
     Active Substance: VITAMINS
     Dosage: 2 DOSAGE FORMS DAILY;
  6. RISPERIDONE. [Concomitant]
     Active Substance: RISPERIDONE
     Dosage: 2 MILLIGRAM DAILY;
  7. PRIADEL [Suspect]
     Active Substance: LITHIUM CARBONATE
     Dosage: 300 MILLIGRAM DAILY; TAKE IN THE MORNING; MODIFIED-RELEASE TABLET
  8. ACEBUTOLOL [Concomitant]
     Active Substance: ACEBUTOLOL
     Dosage: 100 MILLIGRAM DAILY; TAKE IN THE MORNING.

REACTIONS (4)
  - Tremor [Unknown]
  - Hypophagia [Unknown]
  - Agitation [Unknown]
  - Toxicity to various agents [Recovering/Resolving]
